FAERS Safety Report 4794276-9 (Version None)
Quarter: 2005Q4

REPORT INFORMATION
  Report Type: 
  Country: None (occurrence: None)
  Receive Date: 20051011
  Receipt Date: 20050923
  Transmission Date: 20060501
  Serious: Yes (Other)
  Sender: FDA-Public Use
  Company Number: SE-GLAXOSMITHKLINE-B0395398A

PATIENT
  Age: 45 Year
  Sex: Female

DRUGS (10)
  1. ZOVIRAX [Suspect]
     Indication: DRUG USE FOR UNKNOWN INDICATION
     Dosage: 400MG TWICE PER DAY
     Route: 048
  2. HYDREA [Concomitant]
  3. ROCALTROL [Concomitant]
  4. LEVAXIN [Concomitant]
  5. LASIX [Concomitant]
  6. TEGRETOL [Concomitant]
  7. ALLOPURINOL [Concomitant]
  8. ORALOVITE [Concomitant]
  9. KLIOGEST [Concomitant]
  10. ENALAPRIL MALEATE [Concomitant]

REACTIONS (15)
  - AGITATION [None]
  - BLOOD CREATININE INCREASED [None]
  - COMA [None]
  - DISORIENTATION [None]
  - DIZZINESS [None]
  - FATIGUE [None]
  - HALLUCINATION [None]
  - LETHARGY [None]
  - MALAISE [None]
  - MYALGIA [None]
  - NAUSEA [None]
  - OVERDOSE [None]
  - SOMNOLENCE [None]
  - TREMOR [None]
  - VOMITING [None]
